FAERS Safety Report 22029828 (Version 3)
Quarter: 2023Q1

REPORT INFORMATION
  Report Type: Report from Study
  Country: US (occurrence: US)
  Receive Date: 20230223
  Receipt Date: 20230328
  Transmission Date: 20230417
  Serious: Yes (Death, Hospitalization)
  Sender: FDA-Public Use
  Company Number: US-PFIZER INC-PV202300033374

PATIENT
  Age: 58 Year
  Sex: Female
  Weight: 119 kg

DRUGS (14)
  1. XALKORI [Suspect]
     Active Substance: CRIZOTINIB
     Indication: Uveal melanoma
     Dosage: 200 MG BID (C1D15)
     Route: 048
     Dates: start: 20221201
  2. XALKORI [Suspect]
     Active Substance: CRIZOTINIB
     Dosage: 200 MG BID (C2D1)
     Route: 048
     Dates: start: 20221215
  3. DAROVASERTIB [Suspect]
     Active Substance: DAROVASERTIB
     Indication: Uveal melanoma
     Dosage: 100 MG BID (C1D1)
     Route: 048
     Dates: start: 20221117
  4. DAROVASERTIB [Suspect]
     Active Substance: DAROVASERTIB
     Dosage: 100 MG BID (C1D15)
     Route: 048
     Dates: start: 20221201
  5. DAROVASERTIB [Suspect]
     Active Substance: DAROVASERTIB
     Dosage: 100 MG BID (C2D1)
     Route: 048
     Dates: start: 20221215
  6. DAROVASERTIB [Suspect]
     Active Substance: DAROVASERTIB
     Dosage: 300 MG, 2X/DAY
     Route: 048
     Dates: start: 20230105
  7. FUROSEMIDE\POTASSIUM CHLORIDE [Concomitant]
     Active Substance: FUROSEMIDE\POTASSIUM CHLORIDE
     Dosage: UNK
     Dates: start: 20230111
  8. PROVENTIL HFA [Concomitant]
     Active Substance: ALBUTEROL SULFATE
     Dosage: UNK
     Dates: start: 2017
  9. LIDODERM [Concomitant]
     Active Substance: LIDOCAINE
     Dosage: UNK, PATCH
     Dates: start: 20201014
  10. ROXICODONE [Concomitant]
     Active Substance: OXYCODONE HYDROCHLORIDE
     Dosage: UNK
     Dates: start: 20201014
  11. ZOFRAN [Concomitant]
     Active Substance: ONDANSETRON HYDROCHLORIDE
     Dosage: UNK
     Dates: start: 20220215
  12. TYLENOL [Concomitant]
     Active Substance: ACETAMINOPHEN
     Dosage: UNK
     Dates: start: 2000
  13. IMODIUM [Concomitant]
     Active Substance: LOPERAMIDE HYDROCHLORIDE
     Dosage: UNK
     Dates: start: 20221201
  14. ACETAMINOPHEN\ASPIRIN\CAFFEINE\SALICYLAMIDE [Concomitant]
     Active Substance: ACETAMINOPHEN\ASPIRIN\CAFFEINE\SALICYLAMIDE
     Dosage: UNK
     Dates: start: 20221122

REACTIONS (4)
  - Multiple organ dysfunction syndrome [Fatal]
  - Acute kidney injury [Not Recovered/Not Resolved]
  - Pulmonary embolism [Not Recovered/Not Resolved]
  - Pneumonia [Not Recovered/Not Resolved]

NARRATIVE: CASE EVENT DATE: 20230212
